FAERS Safety Report 9403492 (Version 1)
Quarter: 2013Q3

REPORT INFORMATION
  Report Type: Spontaneous
  Country: US (occurrence: US)
  Receive Date: 20130716
  Receipt Date: 20130716
  Transmission Date: 20140515
  Serious: Yes (Other)
  Sender: FDA-Public Use
  Company Number: US-RB-056025-13

PATIENT
  Age: 0 Year
  Sex: Female

DRUGS (2)
  1. SUBUTEX [Suspect]
     Indication: DRUG DEPENDENCE
     Route: 064
     Dates: start: 201008, end: 20110531
  2. NICOTINE [Suspect]
     Indication: NICOTINE DEPENDENCE
     Dosage: 10-15 CIGARETTES DAILY
     Route: 064
     Dates: start: 201008, end: 20110531

REACTIONS (4)
  - Foetal exposure during pregnancy [Recovered/Resolved]
  - Neonatal aspiration [Recovered/Resolved]
  - Sneezing [Recovered/Resolved]
  - Drug withdrawal syndrome neonatal [Recovered/Resolved]
